FAERS Safety Report 6228640-8 (Version None)
Quarter: 2009Q2

REPORT INFORMATION
  Report Type: 
  Country: None (occurrence: None)
  Receive Date: 20090612
  Receipt Date: 20090528
  Transmission Date: 20091009
  Serious: Yes (Death, Other)
  Sender: FDA-Public Use
  Company Number: GB-GENENTECH-284804

PATIENT
  Sex: Female

DRUGS (5)
  1. HERCEPTIN [Suspect]
     Indication: BREAST CANCER
     Dosage: UNK
     Route: 064
  2. HERCEPTIN [Suspect]
     Dosage: 441 MG, Q3W
  3. TAMOXIFEN CITRATE [Suspect]
     Indication: BREAST CANCER
     Dosage: 20 MG, UNK
     Route: 064
     Dates: start: 20060101
  4. ZOLADEX [Suspect]
     Indication: BREAST CANCER
     Route: 064
  5. CHEMOTHERAPY NOS [Concomitant]
     Indication: DRUG USE FOR UNKNOWN INDICATION
     Dosage: UNK
     Dates: start: 20050515, end: 20050915

REACTIONS (8)
  - ATELECTASIS [None]
  - CAESAREAN SECTION [None]
  - CONGENITAL ANOMALY [None]
  - DEATH NEONATAL [None]
  - LIMB DEFORMITY [None]
  - MATERNAL DRUGS AFFECTING FOETUS [None]
  - OLIGOHYDRAMNIOS [None]
  - PULMONARY HYPOPLASIA [None]
